FAERS Safety Report 8663602 (Version 2)
Quarter: 2012Q4

REPORT INFORMATION
  Report Type: Report from Study
  Country: CA (occurrence: CA)
  Receive Date: 20120713
  Receipt Date: 20120907
  Transmission Date: 20130627
  Serious: Yes (Other)
  Sender: FDA-Public Use
  Company Number: CA-JNJFOC-20120702909

PATIENT
  Age: 49 None
  Sex: Male
  Weight: 75 kg

DRUGS (4)
  1. REMICADE [Suspect]
     Indication: CROHN^S DISEASE
     Dosage: third infusion
     Route: 042
     Dates: start: 20120704
  2. REMICADE [Suspect]
     Indication: CROHN^S DISEASE
     Dosage: second infusion
     Route: 042
     Dates: start: 20120608
  3. REMICADE [Suspect]
     Indication: CROHN^S DISEASE
     Route: 042
     Dates: start: 20120523
  4. IMURAN [Concomitant]
     Route: 065

REACTIONS (7)
  - Syncope [Recovering/Resolving]
  - Head injury [Recovering/Resolving]
  - Loss of consciousness [Recovered/Resolved]
  - Inadequate diet [Unknown]
  - Nausea [Unknown]
  - Vomiting [Recovering/Resolving]
  - Lethargy [Recovering/Resolving]
